FAERS Safety Report 6232921-1 (Version None)
Quarter: 2009Q2

REPORT INFORMATION
  Report Type: 
  Country: None (occurrence: None)
  Receive Date: 20090612
  Receipt Date: 20090612
  Transmission Date: 20091009
  Serious: No
  Sender: FDA-Public Use
  Company Number: None

PATIENT
  Age: 48 Year
  Sex: Male
  Weight: 79.3795 kg

DRUGS (2)
  1. LEVAQUIN [Suspect]
     Indication: COUGH
     Dosage: 500 MG ONCE PER DAY PO
     Route: 048
     Dates: start: 20090428, end: 20090502
  2. LEVAQUIN [Suspect]
     Indication: INCREASED UPPER AIRWAY SECRETION
     Dosage: 500 MG ONCE PER DAY PO
     Route: 048
     Dates: start: 20090428, end: 20090502

REACTIONS (4)
  - ARTHRALGIA [None]
  - ASTHENIA [None]
  - LIGAMENT PAIN [None]
  - MYALGIA [None]
